FAERS Safety Report 16166298 (Version 2)
Quarter: 2019Q2

REPORT INFORMATION
  Report Type: Spontaneous
  Country: US (occurrence: US)
  Receive Date: 20190406
  Receipt Date: 20190422
  Transmission Date: 20190711
  Serious: Yes (Other)
  Sender: FDA-Public Use
  Company Number: US-JNJFOC-20190334570

PATIENT

DRUGS (1)
  1. RISPERIDONE. [Suspect]
     Active Substance: RISPERIDONE
     Indication: PRODUCT USED FOR UNKNOWN INDICATION
     Route: 065

REACTIONS (8)
  - Swelling [Unknown]
  - Acne [Unknown]
  - Hallucination, auditory [Unknown]
  - Viral infection [Unknown]
  - Scab [Unknown]
  - Cellulitis [Unknown]
  - Hallucination, visual [Unknown]
  - Rash [Unknown]
